FAERS Safety Report 19497422 (Version 3)
Quarter: 2021Q3

REPORT INFORMATION
  Report Type: Spontaneous
  Country: US (occurrence: US)
  Receive Date: 20210706
  Receipt Date: 20210831
  Transmission Date: 20211014
  Serious: No
  Sender: FDA-Public Use
  Company Number: US-SA-2021SA220891

PATIENT
  Age: 75 Year
  Sex: Male

DRUGS (2)
  1. CORTISOL [CORTISONE ACETATE] [Concomitant]
     Dosage: UNK
  2. DUPIXENT [Suspect]
     Active Substance: DUPILUMAB
     Indication: DERMATITIS ATOPIC
     Dosage: 300 MG, QOW
     Route: 058
     Dates: start: 202106

REACTIONS (8)
  - Unevaluable event [Unknown]
  - Skin atrophy [Unknown]
  - Increased tendency to bruise [Unknown]
  - Dizziness [Unknown]
  - Motion sickness [Unknown]
  - Rash [Unknown]
  - Skin haemorrhage [Unknown]
  - Scratch [Unknown]

NARRATIVE: CASE EVENT DATE: 2021
